FAERS Safety Report 9907699 (Version 2)
Quarter: 2014Q1

REPORT INFORMATION
  Report Type: Report from Study
  Country: AU (occurrence: AU)
  Receive Date: 20140219
  Receipt Date: 20140219
  Transmission Date: 20141002
  Serious: Yes (Life-Threatening, Hospitalization, Other)
  Sender: FDA-Public Use
  Company Number: AU-EXELIXIS-XL18413002807

PATIENT
  Age: 82 Year
  Sex: Male

DRUGS (6)
  1. XL184 [Suspect]
     Indication: PROSTATE CANCER
     Dosage: 60 MG, QD
     Route: 048
     Dates: start: 20130514
  2. XL184 [Suspect]
     Indication: PROSTATE CANCER
     Dosage: 5 MG, BID
     Route: 048
     Dates: start: 20130514
  3. PREDNISOLONE [Concomitant]
  4. OSTELIN [Concomitant]
  5. DUROGESIC [Concomitant]
  6. PANADOL OSTEO [Concomitant]

REACTIONS (4)
  - Loss of consciousness [Recovered/Resolved]
  - Convulsion [Recovered/Resolved]
  - Hypertension [Recovered/Resolved]
  - Orthostatic hypotension [Recovered/Resolved]
